FAERS Safety Report 17980769 (Version 2)
Quarter: 2020Q3

REPORT INFORMATION
  Report Type: Spontaneous
  Country: JP (occurrence: JP)
  Receive Date: 20200704
  Receipt Date: 20200907
  Transmission Date: 20201103
  Serious: Yes (Death, Other)
  Sender: FDA-Public Use
  Company Number: JP-AMGEN-JPNSP2020107518

PATIENT
  Age: 99 Year
  Sex: Female

DRUGS (2)
  1. DARBEPOETIN ALFA [Suspect]
     Active Substance: DARBEPOETIN ALFA
     Indication: NEPHROGENIC ANAEMIA
     Dosage: 30 MICROGRAM, QMO
     Route: 065
     Dates: end: 20200424
  2. CALTAN [Concomitant]
     Active Substance: CALCIUM CARBONATE
     Dosage: UNK
     Route: 048

REACTIONS (1)
  - Renal failure [Fatal]
